FAERS Safety Report 17926800 (Version 2)
Quarter: 2020Q3

REPORT INFORMATION
  Report Type: Spontaneous
  Country: US (occurrence: US)
  Receive Date: 20200623
  Receipt Date: 20200827
  Transmission Date: 20201103
  Serious: No
  Sender: FDA-Public Use
  Company Number: US-ASTRAZENECA-2020SE79669

PATIENT
  Sex: Female

DRUGS (1)
  1. BYDUREON BCISE [Suspect]
     Active Substance: EXENATIDE
     Route: 058

REACTIONS (5)
  - Incorrect dose administered by device [Unknown]
  - Injection site haemorrhage [Unknown]
  - Drug delivery system issue [Unknown]
  - Intentional device misuse [Unknown]
  - Device leakage [Unknown]
